FAERS Safety Report 5568456-9 (Version None)
Quarter: 2007Q4

REPORT INFORMATION
  Report Type: 
  Country: None (occurrence: None)
  Receive Date: 20071220
  Receipt Date: 20071218
  Transmission Date: 20080405
  Serious: Yes (Other)
  Sender: FDA-Public Use
  Company Number: US-ELI_LILLY_AND_COMPANY-US200712003637

PATIENT
  Sex: Male

DRUGS (3)
  1. HUMALOG [Suspect]
     Indication: DIABETES MELLITUS
     Dosage: UNK, AS NEEDED
  2. NOVOLIN N [Concomitant]
     Dosage: UNK, AS NEEDED
  3. NOVOLIN R [Concomitant]
     Dosage: UNK, AS NEEDED

REACTIONS (3)
  - BACK PAIN [None]
  - BLOOD GLUCOSE INCREASED [None]
  - EYE EXCISION [None]
